FAERS Safety Report 6964475-6 (Version None)
Quarter: 2010Q3

REPORT INFORMATION
  Report Type: 
  Country: None (occurrence: None)
  Receive Date: 20100903
  Receipt Date: 20100825
  Transmission Date: 20110219
  Serious: Yes (Other)
  Sender: FDA-Public Use
  Company Number: PH-PFIZER INC-2010105571

PATIENT
  Age: 64 Year
  Sex: Female

DRUGS (4)
  1. LYRICA [Suspect]
     Indication: HYPOAESTHESIA
     Dosage: 75 MG, UNK
     Dates: start: 20070101
  2. DAFLON [Concomitant]
     Indication: HAEMORRHOIDS
     Dosage: 500 MG, UNK
  3. HEMOSTAN [Concomitant]
     Indication: GASTROINTESTINAL HAEMORRHAGE
     Dosage: UNK
  4. FAKTU [Concomitant]
     Dosage: UNK
     Route: 054

REACTIONS (3)
  - ABDOMINAL DISCOMFORT [None]
  - GASTROINTESTINAL HAEMORRHAGE [None]
  - HAEMORRHOIDS [None]
